FAERS Safety Report 12820723 (Version 2)
Quarter: 2016Q4

REPORT INFORMATION
  Report Type: Spontaneous
  Country: CA (occurrence: CA)
  Receive Date: 20161006
  Receipt Date: 20161013
  Transmission Date: 20170207
  Serious: Yes (Other)
  Sender: FDA-Public Use
  Company Number: CA-JNJFOC-20160930677

PATIENT

DRUGS (2)
  1. REMICADE [Suspect]
     Active Substance: INFLIXIMAB
     Indication: CROHN^S DISEASE
     Route: 042
  2. STELARA [Suspect]
     Active Substance: USTEKINUMAB
     Indication: CROHN^S DISEASE
     Dosage: DURING INDUCTION THERAPY WERE 45 MG PER WEEK OR 90 MG PER WEEK, AT 0,1 +2 WEEKS.
     Route: 058
     Dates: start: 201307, end: 201605

REACTIONS (7)
  - Therapeutic response decreased [Unknown]
  - Off label use [Unknown]
  - Migraine [Unknown]
  - Crohn^s disease [Unknown]
  - Product use issue [Unknown]
  - Multiple allergies [Unknown]
  - Adverse event [Unknown]
